FAERS Safety Report 6298671-0 (Version None)
Quarter: 2009Q3

REPORT INFORMATION
  Report Type: 
  Country: None (occurrence: None)
  Receive Date: 20090805
  Receipt Date: 20090729
  Transmission Date: 20100115
  Serious: Yes (Other)
  Sender: FDA-Public Use
  Company Number: US-JNJCH-2009015911

PATIENT
  Age: 67 Year
  Sex: Female
  Weight: 62.6 kg

DRUGS (1)
  1. ZYRTEC-D 12 HOUR [Suspect]
     Indication: HYPERSENSITIVITY
     Dosage: TEXT:ONE TABLET ONCE
     Route: 048
     Dates: start: 20090610, end: 20090610

REACTIONS (11)
  - ASTHMA [None]
  - BRONCHOSPASM [None]
  - DYSPNOEA [None]
  - FEELING ABNORMAL [None]
  - MALAISE [None]
  - MUSCLE SPASMS [None]
  - PALPITATIONS [None]
  - RHINORRHOEA [None]
  - SNEEZING [None]
  - STRESS [None]
  - WRONG DRUG ADMINISTERED [None]
